FAERS Safety Report 7565782-9 (Version None)
Quarter: 2011Q2

REPORT INFORMATION
  Report Type: 
  Country: None (occurrence: None)
  Receive Date: 20110616
  Receipt Date: 20110606
  Transmission Date: 20111010
  Serious: Yes (Hospitalization, Other)
  Sender: FDA-Public Use
  Company Number: 2009SP029107

PATIENT
  Age: 24 Year
  Sex: Female
  Weight: 55.7924 kg

DRUGS (3)
  1. NUVARING [Suspect]
     Indication: CONTRACEPTION
     Dates: start: 20060701, end: 20071001
  2. EFFEXOR [Concomitant]
  3. AMITRIPTYLINE HCL [Concomitant]

REACTIONS (56)
  - THROMBOSIS [None]
  - MELANOCYTIC NAEVUS [None]
  - PANIC ATTACK [None]
  - MENINGITIS ASEPTIC [None]
  - NIGHT SWEATS [None]
  - INSOMNIA [None]
  - DRY SKIN [None]
  - NASAL CONGESTION [None]
  - HEADACHE [None]
  - MEMORY IMPAIRMENT [None]
  - MIGRAINE [None]
  - CHEST PAIN [None]
  - PROTHROMBIN TIME PROLONGED [None]
  - CONSTIPATION [None]
  - GINGIVAL BLEEDING [None]
  - ABDOMINAL PAIN [None]
  - BRONCHIAL HYPERREACTIVITY [None]
  - DUODENITIS [None]
  - INCREASED TENDENCY TO BRUISE [None]
  - VIRAL RASH [None]
  - PLATELET COUNT INCREASED [None]
  - INTERNATIONAL NORMALISED RATIO INCREASED [None]
  - NERVOUSNESS [None]
  - GASTROINTESTINAL HAEMORRHAGE [None]
  - TOBACCO ABUSE [None]
  - CHLAMYDIAL INFECTION [None]
  - FATIGUE [None]
  - MOOD SWINGS [None]
  - MENORRHAGIA [None]
  - CHILLS [None]
  - DECREASED APPETITE [None]
  - CHEST DISCOMFORT [None]
  - FIBRIN D DIMER INCREASED [None]
  - IMMUNE SYSTEM DISORDER [None]
  - PREGNANCY [None]
  - MUSCLE SPASMS [None]
  - COELIAC DISEASE [None]
  - BRONCHITIS [None]
  - RECTAL HAEMORRHAGE [None]
  - HAEMATURIA [None]
  - UPPER-AIRWAY COUGH SYNDROME [None]
  - PAINFUL RESPIRATION [None]
  - PULMONARY EMBOLISM [None]
  - DRUG EXPOSURE BEFORE PREGNANCY [None]
  - PAIN IN EXTREMITY [None]
  - MYALGIA [None]
  - INTERNATIONAL NORMALISED RATIO DECREASED [None]
  - SINUS TACHYCARDIA [None]
  - PULMONARY INFARCTION [None]
  - CRYING [None]
  - PRODUCTIVE COUGH [None]
  - PALPITATIONS [None]
  - DIZZINESS [None]
  - DYSPAREUNIA [None]
  - POLLAKIURIA [None]
  - DRUG INEFFECTIVE [None]
